FAERS Safety Report 8389863-5 (Version None)
Quarter: 2012Q2

REPORT INFORMATION
  Report Type: 
  Country: None (occurrence: None)
  Receive Date: 20120521
  Receipt Date: 20120514
  Transmission Date: 20120825
  Serious: Yes (Death)
  Sender: FDA-Public Use
  Company Number: A0977500A

PATIENT
  Sex: Male

DRUGS (2)
  1. CALCIUM CARBONATE [Suspect]
     Indication: DYSPEPSIA
     Dosage: ORAL
     Route: 048
  2. CALCIUM RICH ROLAIDS (FORMULATION UNKNOWN) (CALCIUM RICH ROLAIDS) [Suspect]
     Indication: PRODUCT USED FOR UNKNOWN INDICATION

REACTIONS (4)
  - LYMPHOMA [None]
  - DRUG ADMINISTRATION ERROR [None]
  - RENAL FAILURE [None]
  - RENAL TRANSPLANT [None]
